FAERS Safety Report 8909971 (Version 1)
Quarter: 2012Q4

REPORT INFORMATION
  Report Type: 
  Country: AU (occurrence: AU)
  Receive Date: 20121114
  Receipt Date: 20121114
  Transmission Date: 20130627
  Serious: Yes (Hospitalization, Other)
  Sender: FDA-Public Use
  Company Number: AU-B.I. PHARMACEUTICALS,INC./RIDGEFIELD-2012-AU-01861AU

PATIENT
  Sex: Male

DRUGS (4)
  1. PRADAXA [Suspect]
  2. ATACAND [Concomitant]
  3. ATENOLOL [Concomitant]
  4. DIGOXIN [Concomitant]

REACTIONS (2)
  - Vasculitis [Recovered/Resolved]
  - Toe amputation [Recovered/Resolved]
